FAERS Safety Report 19467607 (Version 1)
Quarter: 2021Q2

REPORT INFORMATION
  Report Type: Spontaneous
  Country: US (occurrence: US)
  Receive Date: 20210628
  Receipt Date: 20210628
  Transmission Date: 20210717
  Serious: Yes (Other)
  Sender: FDA-Public Use
  Company Number: US-ROCHE-2855305

PATIENT
  Age: 58 Year
  Sex: Female
  Weight: 109.87 kg

DRUGS (11)
  1. FLUCONAZOLE. [Concomitant]
     Active Substance: FLUCONAZOLE
  2. METFORMIN [Concomitant]
     Active Substance: METFORMIN HYDROCHLORIDE
  3. CARISOPRODOL. [Concomitant]
     Active Substance: CARISOPRODOL
  4. AMITRIPTYLINE [Concomitant]
     Active Substance: AMITRIPTYLINE
  5. ATORVASTATIN [Concomitant]
     Active Substance: ATORVASTATIN
  6. OMEPRAZOLE. [Concomitant]
     Active Substance: OMEPRAZOLE
  7. DALFAMPRIDINE. [Concomitant]
     Active Substance: DALFAMPRIDINE
  8. ONDANSETRON [Concomitant]
     Active Substance: ONDANSETRON
  9. OCREVUS [Suspect]
     Active Substance: OCRELIZUMAB
     Indication: MULTIPLE SCLEROSIS RELAPSE
     Route: 042
     Dates: start: 202007
  10. TIZANIDINE. [Concomitant]
     Active Substance: TIZANIDINE
  11. BUPROPION. [Concomitant]
     Active Substance: BUPROPION

REACTIONS (3)
  - Pneumonia [Not Recovered/Not Resolved]
  - Hypertension [Not Recovered/Not Resolved]
  - Carcinoid tumour [Unknown]

NARRATIVE: CASE EVENT DATE: 202010
